FAERS Safety Report 15641554 (Version 1)
Quarter: 2018Q4

REPORT INFORMATION
  Report Type: Spontaneous
  Country: US (occurrence: US)
  Receive Date: 20181120
  Receipt Date: 20181120
  Transmission Date: 20190205
  Serious: No
  Sender: FDA-Public Use
  Company Number: US-ASTRAZENECA-2018SF40626

PATIENT
  Sex: Female

DRUGS (1)
  1. CRESTOR [Suspect]
     Active Substance: ROSUVASTATIN CALCIUM
     Dosage: UNKNOWN DOSE
     Route: 048

REACTIONS (4)
  - Myalgia [Unknown]
  - Gait disturbance [Unknown]
  - Muscle disorder [Unknown]
  - Diabetes mellitus [Unknown]
